FAERS Safety Report 19696998 (Version 1)
Quarter: 2021Q3

REPORT INFORMATION
  Report Type: Spontaneous
  Country: US (occurrence: US)
  Receive Date: 20210813
  Receipt Date: 20210813
  Transmission Date: 20211014
  Serious: No
  Sender: FDA-Public Use
  Company Number: None

PATIENT
  Age: 51 Year
  Sex: Male

DRUGS (1)
  1. HUMIRA [Suspect]
     Active Substance: ADALIMUMAB
     Indication: PSORIASIS
     Dosage: FREQUENCY: OTHER
     Route: 058
     Dates: start: 202009

REACTIONS (4)
  - Appendicitis perforated [None]
  - Therapy interrupted [None]
  - Infection [None]
  - Therapeutic product effect decreased [None]

NARRATIVE: CASE EVENT DATE: 20210201
